FAERS Safety Report 9712565 (Version 2)
Quarter: 2013Q4

REPORT INFORMATION
  Report Type: Spontaneous
  Country: US (occurrence: US)
  Receive Date: 20131126
  Receipt Date: 20131126
  Transmission Date: 20140711
  Serious: No
  Sender: FDA-Public Use
  Company Number: US-BRISTOL-MYERS SQUIBB COMPANY-18891085

PATIENT
  Age: 66 Year
  Sex: Male
  Weight: 115.64 kg

DRUGS (4)
  1. BYDUREON [Suspect]
     Dosage: INJECTION
     Dates: start: 2013
  2. SYMLIN [Suspect]
  3. LANTUS [Concomitant]
     Route: 058
  4. NOVOLOG [Concomitant]
     Route: 058

REACTIONS (1)
  - Blister [Not Recovered/Not Resolved]
